FAERS Safety Report 4892597-2 (Version None)
Quarter: 2006Q1

REPORT INFORMATION
  Report Type: 
  Country: None (occurrence: None)
  Receive Date: 20060124
  Receipt Date: 20060112
  Transmission Date: 20060701
  Serious: Yes (Life-Threatening, Hospitalization)
  Sender: FDA-Public Use
  Company Number: UKP06000009

PATIENT
  Age: 89 Year
  Sex: Female

DRUGS (5)
  1. ACTONEL [Suspect]
     Indication: OSTEOPOROSIS
     Dosage: 35 MG, 1 /WEEK, ORAL
     Route: 048
     Dates: end: 20051223
  2. BENDROFLUMETHIAZIDE (BENDROFLUMETHIAZIDE) [Concomitant]
  3. CANDESARTAN (CANDESARTAN) [Concomitant]
  4. DOXAZOSIN (DOXAZOSIN) [Concomitant]
  5. TEMAZEPAM [Concomitant]

REACTIONS (2)
  - MICROCYTIC ANAEMIA [None]
  - PITTING OEDEMA [None]
